FAERS Safety Report 24873266 (Version 1)
Quarter: 2025Q1

REPORT INFORMATION
  Report Type: Spontaneous
  Country: US (occurrence: US)
  Receive Date: 20250122
  Receipt Date: 20250122
  Transmission Date: 20250408
  Serious: Yes (Death, Other)
  Sender: ORGANON
  Company Number: US-ORGANON-O2501USA002188

PATIENT
  Age: 55 Year
  Sex: Male

DRUGS (8)
  1. ZETIA [Suspect]
     Active Substance: EZETIMIBE
     Route: 048
  2. DAPSONE [Suspect]
     Active Substance: DAPSONE
     Route: 048
  3. AMLODIPINE [Suspect]
     Active Substance: AMLODIPINE BESYLATE
     Route: 048
  4. CARVEDILOL [Suspect]
     Active Substance: CARVEDILOL
     Route: 048
  5. ABACAVIR, DOLUTEGRAVIR AND LAMIVUDINE [Suspect]
     Active Substance: ABACAVIR SULFATE\DOLUTEGRAVIR SODIUM\LAMIVUDINE
     Route: 048
  6. ZOLPIDEM [Suspect]
     Active Substance: ZOLPIDEM TARTRATE
     Route: 048
  7. METHOCARBAMOL [Suspect]
     Active Substance: METHOCARBAMOL
     Route: 048
  8. DIAZEPAM [Suspect]
     Active Substance: DIAZEPAM
     Route: 048

REACTIONS (1)
  - Suspected suicide [Fatal]
